FAERS Safety Report 6975395-5 (Version None)
Quarter: 2010Q3

REPORT INFORMATION
  Report Type: 
  Country: None (occurrence: None)
  Receive Date: 20100908
  Receipt Date: 20100824
  Transmission Date: 20110219
  Serious: No
  Sender: FDA-Public Use
  Company Number: 2010070008

PATIENT
  Age: 60 Year
  Sex: Male
  Weight: 74.3899 kg

DRUGS (14)
  1. ONSOLIS [Suspect]
     Indication: CANCER PAIN
     Dosage: 800 MCG (200 MCG, 4 IN 1 D), BU; 1600 MCG (400 MCG, 4 IN 1 D), BU; 2400 MCG (600 MCG, 4 IN 1 D), BU
     Route: 002
     Dates: start: 20100401, end: 20100503
  2. ONSOLIS [Suspect]
     Indication: CANCER PAIN
     Dosage: 800 MCG (200 MCG, 4 IN 1 D), BU; 1600 MCG (400 MCG, 4 IN 1 D), BU; 2400 MCG (600 MCG, 4 IN 1 D), BU
     Route: 002
     Dates: start: 20100504, end: 20100519
  3. ONSOLIS [Suspect]
     Indication: CANCER PAIN
     Dosage: 800 MCG (200 MCG, 4 IN 1 D), BU; 1600 MCG (400 MCG, 4 IN 1 D), BU; 2400 MCG (600 MCG, 4 IN 1 D), BU
     Route: 002
     Dates: start: 20100520, end: 20100714
  4. ONSOLIS [Suspect]
     Indication: CANCER PAIN
     Dosage: 800 MCG (200 MCG, 4 IN 1 D), BU; 1600 MCG (400 MCG, 4 IN 1 D), BU; 2400 MCG (600 MCG, 4 IN 1 D), BU
     Route: 002
     Dates: start: 20100715
  5. ONSOLIS [Suspect]
  6. LORTAB [Concomitant]
  7. FENTANYL-100 [Concomitant]
  8. DILAUDID [Concomitant]
  9. COUMADIN [Concomitant]
  10. FOLIC ACID [Concomitant]
  11. MULTIVITAMIN [Concomitant]
  12. ZOLOFT [Concomitant]
  13. RELISTOR (METHYLNALTREXONE BROMIDE) [Concomitant]
  14. FISH OIL [Concomitant]

REACTIONS (3)
  - BREAKTHROUGH PAIN [None]
  - INCORRECT DOSE ADMINISTERED [None]
  - TREATMENT NONCOMPLIANCE [None]
